FAERS Safety Report 6675479-5 (Version None)
Quarter: 2010Q2

REPORT INFORMATION
  Report Type: 
  Country: None (occurrence: None)
  Receive Date: 20100409
  Receipt Date: 20100402
  Transmission Date: 20101027
  Serious: Yes (Hospitalization, Disabling)
  Sender: FDA-Public Use
  Company Number: B0619685A

PATIENT
  Sex: Female

DRUGS (3)
  1. ZANAMIVIR [Suspect]
     Indication: INFLUENZA
     Dosage: 600MG SINGLE DOSE
     Route: 042
     Dates: start: 20091216, end: 20091216
  2. CIPROFLOXACIN HCL [Concomitant]
     Indication: SEPTIC SHOCK
     Dosage: 400MG TWICE PER DAY
     Route: 042
     Dates: start: 20091214
  3. ESOMEPRAZOLE [Concomitant]
     Indication: PROPHYLAXIS
     Dosage: 40MG FOUR TIMES PER DAY
     Route: 042
     Dates: start: 20091214

REACTIONS (1)
  - RENAL FAILURE [None]
